FAERS Safety Report 4674515-5 (Version None)
Quarter: 2005Q2

REPORT INFORMATION
  Report Type: 
  Country: None (occurrence: None)
  Receive Date: 20050524
  Receipt Date: 20050513
  Transmission Date: 20051028
  Serious: Yes (Death, Life-Threatening, Hospitalization)
  Sender: FDA-Public Use
  Company Number: 20050500123

PATIENT
  Age: 77 Year
  Sex: Male
  Weight: 90.3112 kg

DRUGS (10)
  1. HEPARIN (BAXTER) [Suspect]
     Dosage: 5000 UNITS IV
     Route: 042
     Dates: start: 20041103, end: 20041103
  2. INTEGRILIN [Suspect]
     Dosage: 7.9 CC BOLUS IV
     Route: 040
     Dates: start: 20041103, end: 20041103
  3. INTEGRILIN [Suspect]
     Dosage: 7.9 CC BOLUS  IV
     Route: 042
     Dates: start: 20041103, end: 20041103
  4. INTEGRILIN [Suspect]
     Dosage: 14 ML CONTINUOUS IV
     Route: 042
     Dates: start: 20041103, end: 20041104
  5. ASPIRIN [Suspect]
     Dosage: 81 MG QD PO
     Route: 048
     Dates: start: 20041103, end: 20041101
  6. PLAVIX [Suspect]
     Dosage: 75 MG QD PO
     Route: 048
     Dates: start: 20041103, end: 20041101
  7. LOPRESSOR [Concomitant]
  8. NITROGLYCERIN (NITROGLYCERINE) [Concomitant]
  9. AVAPRO (IRBESARTAN0 [Concomitant]
  10. GALANTAMINE (GALANTAMINE HYDROBROMIDE) [Concomitant]

REACTIONS (7)
  - CARDIAC FLUTTER [None]
  - CARDIO-RESPIRATORY ARREST [None]
  - CEREBRAL HAEMORRHAGE [None]
  - DEPRESSED LEVEL OF CONSCIOUSNESS [None]
  - HYDROCEPHALUS [None]
  - LOSS OF CONSCIOUSNESS [None]
  - RESPIRATORY ARREST [None]
